FAERS Safety Report 17439780 (Version 1)
Quarter: 2020Q1

REPORT INFORMATION
  Report Type: Spontaneous
  Country: US (occurrence: US)
  Receive Date: 20200219
  Receipt Date: 20200219
  Transmission Date: 20200409
  Serious: Yes (Disabling, Other)
  Sender: FDA-Public Use
  Company Number: None

PATIENT
  Age: 56 Year
  Sex: Female
  Weight: 81 kg

DRUGS (1)
  1. OZEMPIC [Suspect]
     Active Substance: SEMAGLUTIDE
     Indication: INSULIN RESISTANCE
     Dosage: ?          QUANTITY:1 INJECTION(S);OTHER FREQUENCY:ONCE PER WEEK;?
     Route: 058

REACTIONS (6)
  - Dry skin [None]
  - Hair texture abnormal [None]
  - Taste disorder [None]
  - Headache [None]
  - Nasal dryness [None]
  - Parosmia [None]

NARRATIVE: CASE EVENT DATE: 20190801
